FAERS Safety Report 19998668 (Version 2)
Quarter: 2021Q4

REPORT INFORMATION
  Report Type: Spontaneous
  Country: US (occurrence: US)
  Receive Date: 20211027
  Receipt Date: 20211026
  Transmission Date: 20220303
  Serious: No
  Sender: FDA-Public Use
  Company Number: US-ROCHE-2707772

PATIENT
  Age: 69 Year
  Sex: Male

DRUGS (4)
  1. COTELLIC [Suspect]
     Active Substance: COBIMETINIB
     Indication: Malignant melanoma
     Route: 048
     Dates: start: 20201010
  2. COTELLIC [Suspect]
     Active Substance: COBIMETINIB
     Indication: Diverticulum intestinal
  3. ZELBORAF [Suspect]
     Active Substance: VEMURAFENIB
     Indication: Malignant melanoma
     Route: 048
     Dates: start: 20201010
  4. ZELBORAF [Suspect]
     Active Substance: VEMURAFENIB
     Indication: Diverticulum intestinal

REACTIONS (3)
  - Rash [Unknown]
  - Pyrexia [Unknown]
  - Fatigue [Unknown]

NARRATIVE: CASE EVENT DATE: 20201023
